FAERS Safety Report 19931663 (Version 1)
Quarter: 2021Q4

REPORT INFORMATION
  Report Type: Spontaneous
  Country: BG (occurrence: BG)
  Receive Date: 20211008
  Receipt Date: 20211008
  Transmission Date: 20220304
  Serious: Yes (Death, Hospitalization, Other)
  Sender: FDA-Public Use
  Company Number: BG-VISTAPHARM, INC.-VER202110-001990

PATIENT
  Age: 20 Year
  Sex: Female

DRUGS (2)
  1. ACETAMINOPHEN\HYDROCODONE [Suspect]
     Active Substance: ACETAMINOPHEN\HYDROCODONE
     Indication: Product used for unknown indication
     Dosage: OVER 5 G
     Route: 065
  2. ACETAMINOPHEN\HYDROCODONE [Suspect]
     Active Substance: ACETAMINOPHEN\HYDROCODONE
     Dosage: 10 G
     Route: 065

REACTIONS (5)
  - Hepatic encephalopathy [Fatal]
  - Haemorrhage [Fatal]
  - Pulmonary oedema [Fatal]
  - Poisoning [Fatal]
  - Overdose [Fatal]

NARRATIVE: CASE EVENT DATE: 20191101
